FAERS Safety Report 7066427-7 (Version None)
Quarter: 2010Q4

REPORT INFORMATION
  Report Type: 
  Country: None (occurrence: None)
  Receive Date: 20101027
  Receipt Date: 20091202
  Transmission Date: 20110411
  Serious: No
  Sender: FDA-Public Use
  Company Number: US-WYE-H12499809

PATIENT
  Sex: Female
  Weight: 73.55 kg

DRUGS (6)
  1. PREMPRO [Suspect]
     Indication: HOT FLUSH
     Dosage: 0.3/1.5; UNSPECIFIED FREQUENCY
     Route: 048
  2. PREMPRO [Suspect]
     Indication: OSTEOPOROSIS
  3. PREMPRO [Suspect]
     Indication: MENOPAUSE
  4. MAVIK [Concomitant]
  5. LIPITOR [Concomitant]
  6. SYNTHROID [Concomitant]

REACTIONS (3)
  - BLOOD CHOLESTEROL INCREASED [None]
  - BLOOD POTASSIUM INCREASED [None]
  - BLOOD TRIGLYCERIDES INCREASED [None]
